FAERS Safety Report 6390517-5 (Version None)
Quarter: 2009Q4

REPORT INFORMATION
  Report Type: 
  Country: None (occurrence: None)
  Receive Date: 20091005
  Receipt Date: 20091005
  Transmission Date: 20100525
  Serious: Yes (Other)
  Sender: FDA-Public Use
  Company Number: None

PATIENT
  Sex: Female
  Weight: 50.8029 kg

DRUGS (1)
  1. CREST PRO-HEALTH MOUTH WASH PROCTOR + GAMBLE [Suspect]
     Indication: DENTAL DISORDER PROPHYLAXIS
     Dosage: 20 ML TWICE A DAY DENTAL
     Route: 004
     Dates: start: 20090808, end: 20090908

REACTIONS (4)
  - EMOTIONAL DISORDER [None]
  - GINGIVAL DISCOLOURATION [None]
  - PRODUCT LABEL ISSUE [None]
  - TOOTH DISCOLOURATION [None]
